FAERS Safety Report 6315112-5 (Version None)
Quarter: 2009Q3

REPORT INFORMATION
  Report Type: 
  Country: None (occurrence: None)
  Receive Date: 20090819
  Receipt Date: 20090810
  Transmission Date: 20100115
  Serious: Yes (Hospitalization)
  Sender: FDA-Public Use
  Company Number: JP-NOVOPROD-290368

PATIENT
  Age: 64 Year
  Sex: Male
  Weight: 52 kg

DRUGS (2)
  1. LEVEMIR [Suspect]
     Indication: TYPE 2 DIABETES MELLITUS
     Dosage: 4 IU, QD
     Route: 058
  2. NOVORAPID CHU FLEXPEN [Suspect]
     Indication: TYPE 2 DIABETES MELLITUS
     Dosage: 4 IU, BID

REACTIONS (3)
  - ERYTHEMA [None]
  - ILL-DEFINED DISORDER [None]
  - INDURATION [None]
